FAERS Safety Report 4444224-6 (Version None)
Quarter: 2004Q3

REPORT INFORMATION
  Report Type: 
  Country: None (occurrence: None)
  Receive Date: 20040902
  Receipt Date: 20040817
  Transmission Date: 20050211
  Serious: Yes (Hospitalization)
  Sender: FDA-Public Use
  Company Number: A03200402771

PATIENT
  Age: 23 Month
  Sex: Male
  Weight: 11.88 kg

DRUGS (5)
  1. NEO-SYNEPRHINE - PHENYLEPHRINE - DROPS [Suspect]
     Indication: OPHTHALMOLOGICAL EXAMINATION
     Dosage: DOSE:  1 DROP IN EACH EYE,  EVERY 5 MINUTES FOR A TOTAL OF 3 DROPS OF EACH OVER A 15-MINUTE PERIOD.
     Route: 047
  2. CYCLOGYL [Suspect]
     Indication: CYCLOPLEGIA
     Dosage: 1 DROP IN EACH EYE, EVERY 5 MINUTES, FOR A TOTAL OF 3 DROPS OF EACH OVER A 15-MINUTE PERIOD. - OPHT
     Route: 047
  3. MORPHINE [Concomitant]
  4. SULFADIAZINE [Concomitant]
  5. DIPTHERIA TETANUS VACCINE [Concomitant]

REACTIONS (7)
  - BLOOD CHLORIDE DECREASED [None]
  - BLOOD CHOLINESTERASE DECREASED [None]
  - BLOOD GLUCOSE INCREASED [None]
  - BLOOD POTASSIUM INCREASED [None]
  - BLOOD SODIUM DECREASED [None]
  - BURNS THIRD DEGREE [None]
  - GRAND MAL CONVULSION [None]
